FAERS Safety Report 13347089 (Version 1)
Quarter: 2017Q1

REPORT INFORMATION
  Report Type: Spontaneous
  Country: CN (occurrence: CN)
  Receive Date: 20170317
  Receipt Date: 20170317
  Transmission Date: 20170428
  Serious: Yes (Other)
  Sender: FDA-Public Use
  Company Number: CN-PFIZER INC-2017116347

PATIENT
  Age: 85 Year
  Sex: Male
  Weight: 59 kg

DRUGS (3)
  1. ZOLOFT [Suspect]
     Active Substance: SERTRALINE HYDROCHLORIDE
     Dosage: 100 MG, 1X/DAY
     Route: 048
     Dates: start: 20161009
  2. MEISUYU [Suspect]
     Active Substance: TRAZODONE HYDROCHLORIDE
     Indication: PARKINSON^S DISEASE PSYCHOSIS
     Dosage: 50 MG, 1X/DAY
     Route: 048
     Dates: start: 20160929, end: 20161017
  3. ZOLOFT [Suspect]
     Active Substance: SERTRALINE HYDROCHLORIDE
     Indication: PARKINSON^S DISEASE PSYCHOSIS
     Dosage: 75 MG, 1X/DAY
     Route: 048
     Dates: start: 20160926, end: 20161009

REACTIONS (3)
  - Dysuria [Not Recovered/Not Resolved]
  - Constipation [Recovering/Resolving]
  - Urinary retention [Unknown]

NARRATIVE: CASE EVENT DATE: 20161014
